FAERS Safety Report 9118849 (Version 1)
Quarter: 2013Q1

REPORT INFORMATION
  Report Type: Spontaneous
  Country: US (occurrence: None)
  Receive Date: 20130130
  Receipt Date: 20130130
  Transmission Date: 20140127
  Serious: Yes (Other)
  Sender: FDA-Public Use
  Company Number: US-SEPTODONT-201200871

PATIENT
  Age: 53 Year
  Sex: Female

DRUGS (2)
  1. SEPTOCAINE AND EPINEPHRINE [Suspect]
     Route: 004
     Dates: start: 20091020
  2. VIVACAINE [Suspect]
     Route: 004
     Dates: start: 20091020

REACTIONS (2)
  - Hypoaesthesia oral [None]
  - Temporomandibular joint syndrome [None]
